FAERS Safety Report 10251810 (Version 1)
Quarter: 2014Q2

REPORT INFORMATION
  Report Type: Spontaneous
  Country: KR (occurrence: KR)
  Receive Date: 20140623
  Receipt Date: 20140623
  Transmission Date: 20141212
  Serious: Yes (Other)
  Sender: FDA-Public Use
  Company Number: KR-MERCK-1406KOR008877

PATIENT
  Age: 68 Year
  Sex: Female
  Weight: 45 kg

DRUGS (2)
  1. FOSAMAX 70MG TABLET [Suspect]
     Indication: OSTEOPOROSIS
     Dosage: 70 MG, QW
     Route: 048
     Dates: start: 20080916, end: 201012
  2. CALTEO [Concomitant]
     Indication: OSTEOPOROSIS
     Dosage: DAILY DOSAGE-750 MG/400IU
     Route: 048
     Dates: start: 20080919, end: 20110210

REACTIONS (2)
  - Osteonecrosis of jaw [Recovered/Resolved]
  - Sequestrectomy [Recovered/Resolved]
